FAERS Safety Report 17526178 (Version 1)
Quarter: 2020Q1

REPORT INFORMATION
  Report Type: Spontaneous
  Country: US (occurrence: US)
  Receive Date: 20200303
  Receipt Date: 20200303
  Transmission Date: 20200409
  Serious: Yes (Life-Threatening, Hospitalization)
  Sender: FDA-Public Use
  Company Number: None

PATIENT
  Age: 51 Year
  Sex: Male
  Weight: 101.15 kg

DRUGS (1)
  1. SKYRIZI [Suspect]
     Active Substance: RISANKIZUMAB-RZAA
     Indication: PSORIASIS
     Dosage: ?          QUANTITY:(2) SINGLE DOSE SY;OTHER FREQUENCY:2 DOSES EVERY 3 MO;OTHER ROUTE:INJECTION?
     Dates: start: 20190903, end: 20191012

REACTIONS (3)
  - Large intestine perforation [None]
  - Sepsis [None]
  - Large intestine infection [None]

NARRATIVE: CASE EVENT DATE: 20191211
